FAERS Safety Report 4808436-1 (Version None)
Quarter: 2005Q4

REPORT INFORMATION
  Report Type: 
  Country: None (occurrence: None)
  Receive Date: 20051021
  Receipt Date: 20040721
  Transmission Date: 20060501
  Serious: No
  Sender: FDA-Public Use
  Company Number: AU_040707939

PATIENT
  Age: 81 Year
  Sex: Male

DRUGS (6)
  1. ZYPREXA [Suspect]
     Indication: MOOD SWINGS
     Dosage: 5 MG DAY
     Dates: start: 20040621
  2. WARFARIN [Concomitant]
  3. COVERSYL (PERINDOPRIL ERBUMINE0 [Concomitant]
  4. DIABEX (METFORMIN  HYDROCHLORIDE0 [Concomitant]
  5. DIAMICRON (GLICLAZIDE) [Concomitant]
  6. LENOXIN (DIGOXIN) [Concomitant]

REACTIONS (1)
  - INTERNATIONAL NORMALISED RATIO INCREASED [None]
